FAERS Safety Report 19494979 (Version 9)
Quarter: 2025Q3

REPORT INFORMATION
  Report Type: Report from Study
  Country: CA (occurrence: CA)
  Receive Date: 20210706
  Receipt Date: 20250912
  Transmission Date: 20251021
  Serious: Yes (Other)
  Sender: CELLTRION
  Company Number: CA-CELLTRION INC.-2021CA008858

PATIENT

DRUGS (92)
  1. RITUXIMAB [Suspect]
     Active Substance: RITUXIMAB
     Indication: Rheumatoid arthritis
     Route: 042
  2. RITUXIMAB [Suspect]
     Active Substance: RITUXIMAB
     Indication: Immunoglobulin G4 related disease
     Route: 042
  3. RITUXIMAB [Suspect]
     Active Substance: RITUXIMAB
     Route: 042
  4. RITUXIMAB [Suspect]
     Active Substance: RITUXIMAB
     Route: 042
  5. RITUXIMAB [Suspect]
     Active Substance: RITUXIMAB
     Route: 042
  6. RITUXIMAB [Suspect]
     Active Substance: RITUXIMAB
     Route: 042
  7. RITUXIMAB [Suspect]
     Active Substance: RITUXIMAB
     Route: 042
  8. RITUXIMAB [Suspect]
     Active Substance: RITUXIMAB
     Route: 042
  9. RITUXIMAB [Suspect]
     Active Substance: RITUXIMAB
     Route: 042
  10. RITUXIMAB [Suspect]
     Active Substance: RITUXIMAB
     Route: 042
  11. RITUXIMAB [Suspect]
     Active Substance: RITUXIMAB
     Route: 042
  12. RITUXIMAB [Suspect]
     Active Substance: RITUXIMAB
     Route: 042
  13. RITUXIMAB [Suspect]
     Active Substance: RITUXIMAB
     Route: 042
  14. RITUXIMAB [Suspect]
     Active Substance: RITUXIMAB
     Route: 042
  15. RITUXIMAB [Suspect]
     Active Substance: RITUXIMAB
     Route: 042
  16. RITUXIMAB [Suspect]
     Active Substance: RITUXIMAB
     Route: 042
  17. ACETAMINOPHEN [Concomitant]
     Active Substance: ACETAMINOPHEN
     Indication: Premedication
     Route: 048
  18. ACETAMINOPHEN [Concomitant]
     Active Substance: ACETAMINOPHEN
     Indication: Premedication
     Route: 048
  19. ACETAMINOPHEN [Concomitant]
     Active Substance: ACETAMINOPHEN
     Route: 048
  20. ACETAMINOPHEN [Concomitant]
     Active Substance: ACETAMINOPHEN
     Route: 048
  21. ACETAMINOPHEN [Concomitant]
     Active Substance: ACETAMINOPHEN
     Route: 048
  22. ACETAMINOPHEN [Concomitant]
     Active Substance: ACETAMINOPHEN
     Route: 048
  23. ACETAMINOPHEN [Concomitant]
     Active Substance: ACETAMINOPHEN
     Route: 048
  24. ACETAMINOPHEN [Concomitant]
     Active Substance: ACETAMINOPHEN
     Route: 048
  25. ACETAMINOPHEN [Concomitant]
     Active Substance: ACETAMINOPHEN
     Route: 048
  26. ACTIVASE [Concomitant]
     Active Substance: ALTEPLASE
  27. ACYCLOVIR [Concomitant]
     Active Substance: ACYCLOVIR
  28. ADVAIR HFA [Concomitant]
     Active Substance: FLUTICASONE PROPIONATE\SALMETEROL XINAFOATE
  29. EBASTINE [Concomitant]
     Active Substance: EBASTINE
     Route: 048
  30. EBASTINE [Concomitant]
     Active Substance: EBASTINE
     Route: 048
  31. EBASTINE [Concomitant]
     Active Substance: EBASTINE
     Route: 042
  32. EBASTINE [Concomitant]
     Active Substance: EBASTINE
     Route: 048
  33. ALTEPLASE [Concomitant]
     Active Substance: ALTEPLASE
     Route: 065
  34. ATORVASTATIN [Concomitant]
     Active Substance: ATORVASTATIN
     Route: 048
  35. ATORVASTATIN CALCIUM [Concomitant]
     Active Substance: ATORVASTATIN CALCIUM
  36. BENADRYL [Concomitant]
     Active Substance: DIPHENHYDRAMINE HYDROCHLORIDE
     Route: 042
  37. BENADRYL [Concomitant]
     Active Substance: DIPHENHYDRAMINE HYDROCHLORIDE
     Route: 042
  38. BENADRYL [Concomitant]
     Active Substance: DIPHENHYDRAMINE HYDROCHLORIDE
     Route: 042
  39. BENADRYL [Concomitant]
     Active Substance: DIPHENHYDRAMINE HYDROCHLORIDE
     Route: 042
  40. BENADRYL [Concomitant]
     Active Substance: DIPHENHYDRAMINE HYDROCHLORIDE
     Route: 048
  41. BENADRYL [Concomitant]
     Active Substance: DIPHENHYDRAMINE HYDROCHLORIDE
     Route: 048
  42. BENADRYL [Concomitant]
     Active Substance: DIPHENHYDRAMINE HYDROCHLORIDE
     Route: 042
  43. BISACODYL [Concomitant]
     Active Substance: BISACODYL
     Route: 065
  44. BISACODYL [Concomitant]
     Active Substance: BISACODYL
  45. CARBOXYMETHYLCELLULOSE [Concomitant]
     Active Substance: CARBOXYMETHYLCELLULOSE
  46. COLACE [Concomitant]
     Active Substance: DOCUSATE SODIUM
  47. DALTEPARIN SODIUM [Concomitant]
     Active Substance: DALTEPARIN SODIUM
  48. DIMENHYDRINATE [Concomitant]
     Active Substance: DIMENHYDRINATE
  49. DIPHENHYDRAMINE [Concomitant]
     Active Substance: DIPHENHYDRAMINE
     Indication: Premedication
     Route: 042
  50. DIPHENHYDRAMINE [Concomitant]
     Active Substance: DIPHENHYDRAMINE
     Route: 048
  51. DIPHENHYDRAMINE [Concomitant]
     Active Substance: DIPHENHYDRAMINE
     Route: 042
  52. DIPHENHYDRAMINE [Concomitant]
     Active Substance: DIPHENHYDRAMINE
     Route: 042
  53. DIPHENHYDRAMINE [Concomitant]
     Active Substance: DIPHENHYDRAMINE
     Route: 042
  54. DIPHENHYDRAMINE [Concomitant]
     Active Substance: DIPHENHYDRAMINE
     Route: 042
  55. ERYTHROMYCIN [Concomitant]
     Active Substance: ERYTHROMYCIN
  56. ESTRADIOL [Concomitant]
     Active Substance: ESTRADIOL
  57. FAMOTIDINE [Concomitant]
     Active Substance: FAMOTIDINE
     Indication: Premedication
     Route: 042
  58. FUROSEMIDE [Concomitant]
     Active Substance: FUROSEMIDE
     Route: 065
  59. FUROSEMIDE [Concomitant]
     Active Substance: FUROSEMIDE
  60. GRAVOL [Concomitant]
     Active Substance: DIMENHYDRINATE
     Indication: Nausea
     Route: 042
  61. GRAVOL [Concomitant]
     Active Substance: DIMENHYDRINATE
     Route: 042
  62. GRAVOL [Concomitant]
     Active Substance: DIMENHYDRINATE
     Route: 042
  63. GRAVOL [Concomitant]
     Active Substance: DIMENHYDRINATE
     Indication: Nausea
     Route: 042
  64. GRAVOL [Concomitant]
     Active Substance: DIMENHYDRINATE
     Route: 042
  65. GRAVOL [Concomitant]
     Active Substance: DIMENHYDRINATE
     Route: 042
  66. HYDROMORPHONE [Concomitant]
     Active Substance: HYDROMORPHONE
  67. LACTULOSE [Concomitant]
     Active Substance: LACTULOSE
  68. LACTULOSE [Concomitant]
     Active Substance: LACTULOSE
  69. LEVOFLOXACIN [Concomitant]
     Active Substance: LEVOFLOXACIN
  70. LORAZEPAM [Concomitant]
     Active Substance: LORAZEPAM
     Route: 065
  71. LORAZEPAM [Concomitant]
     Active Substance: LORAZEPAM
  72. POLYETHYLENE GLYCOL 400\PROPYLENE GLYCOL [Concomitant]
     Active Substance: POLYETHYLENE GLYCOL 400\PROPYLENE GLYCOL
  73. METHYLPREDNISOLONE [Concomitant]
     Active Substance: METHYLPREDNISOLONE
     Indication: Premedication
     Route: 042
  74. METHYLPREDNISOLONE [Concomitant]
     Active Substance: METHYLPREDNISOLONE
     Route: 042
  75. METHYLPREDNISOLONE [Concomitant]
     Active Substance: METHYLPREDNISOLONE
     Route: 042
  76. METHYLPREDNISOLONE [Concomitant]
     Active Substance: METHYLPREDNISOLONE
     Route: 042
  77. METHYLPREDNISOLONE [Concomitant]
     Active Substance: METHYLPREDNISOLONE
     Route: 042
  78. METHYLPREDNISOLONE [Concomitant]
     Active Substance: METHYLPREDNISOLONE
     Route: 042
  79. METOCLOPRAMIDE HYDROCHLORIDE [Concomitant]
     Active Substance: METOCLOPRAMIDE HYDROCHLORIDE
     Indication: Premedication
     Route: 042
  80. METRONIDAZOLE [Concomitant]
     Active Substance: METRONIDAZOLE
  81. MIRTAZAPINE [Concomitant]
     Active Substance: MIRTAZAPINE
  82. MOMETASONE [Concomitant]
     Active Substance: MOMETASONE
  83. MONTELUKAST [Concomitant]
     Active Substance: MONTELUKAST
  84. NALOXONE [Concomitant]
     Active Substance: NALOXONE
     Route: 065
  85. NALOXONE [Concomitant]
     Active Substance: NALOXONE
  86. ONDANSETRON [Concomitant]
     Active Substance: ONDANSETRON
     Route: 048
  87. ONDANSETRON [Concomitant]
     Active Substance: ONDANSETRON
     Route: 048
  88. PANTOPRAZOLE [Concomitant]
     Active Substance: PANTOPRAZOLE
  89. PREDNISONE [Concomitant]
     Active Substance: PREDNISONE
  90. ALBUTEROL [Concomitant]
     Active Substance: ALBUTEROL
  91. SPIRONOLACTONE [Concomitant]
     Active Substance: SPIRONOLACTONE
  92. VALSARTAN [Concomitant]
     Active Substance: VALSARTAN

REACTIONS (9)
  - Abdominal pain [Recovered/Resolved]
  - Flushing [Recovered/Resolved]
  - Nausea [Recovered/Resolved]
  - Pruritus [Recovered/Resolved]
  - Weight increased [Recovered/Resolved]
  - Infusion related reaction [Recovered/Resolved]
  - Off label use [Recovered/Resolved]
  - Intentional product use issue [Recovered/Resolved]
  - Intentional product use issue [Unknown]
